FAERS Safety Report 25691204 (Version 1)
Quarter: 2025Q3

REPORT INFORMATION
  Report Type: Spontaneous
  Country: US (occurrence: US)
  Receive Date: 20250818
  Receipt Date: 20250818
  Transmission Date: 20251021
  Serious: No
  Sender: MEDEXUS PHARMA
  Company Number: US-MEDEXUS PHARMA, INC.-2025MED00188

PATIENT
  Age: 54 Year
  Sex: Female
  Weight: 52.1 kg

DRUGS (21)
  1. GRAFAPEX [Suspect]
     Active Substance: TREOSULFAN
     Indication: Allogenic stem cell transplantation
     Dosage: 10G/M2 Q24H (EVERY 24 HOURS) X 3 DOSES
     Route: 042
     Dates: start: 202506, end: 202506
  2. DRONABINOL [Concomitant]
     Active Substance: DRONABINOL
     Dosage: 2.5 MG, 2X/DAY
     Route: 048
  3. ESTRADIOL [Concomitant]
     Active Substance: ESTRADIOL
     Route: 062
  4. GABAPENTIN [Concomitant]
     Active Substance: GABAPENTIN
     Dosage: 300 MG, 1X/DAY QHS
  5. LETERMOVIR [Concomitant]
     Active Substance: LETERMOVIR
     Dosage: 480 MG, 1X/DAY
     Route: 048
  6. LIDOCAINE [Concomitant]
     Active Substance: LIDOCAINE
     Dosage: 2 PATCH, 1X/DAY (Q24H)
     Route: 062
  7. METHOTREXATE [Concomitant]
     Active Substance: METHOTREXATE
     Route: 042
     Dates: start: 20250613, end: 20250613
  8. METHOTREXATE [Concomitant]
     Active Substance: METHOTREXATE
     Route: 042
     Dates: start: 20250616, end: 20250616
  9. METHOTREXATE [Concomitant]
     Active Substance: METHOTREXATE
     Route: 042
     Dates: start: 20250621, end: 20250621
  10. METHOTREXATE [Concomitant]
     Active Substance: METHOTREXATE
     Route: 042
  11. ONDANSETRON [Concomitant]
     Active Substance: ONDANSETRON
     Dosage: 8 MG, 4X/DAY (Q6H); IV PUSH
     Route: 042
  12. PHYTONADIONE [Concomitant]
     Active Substance: PHYTONADIONE
     Dosage: 10 MG, 1X/WEEK
     Route: 048
  13. POLYETHYLENE GLYCOL 3350 [Concomitant]
     Active Substance: POLYETHYLENE GLYCOL 3350
     Dosage: 17 G, 1X/DAY
     Route: 048
  14. POSACONAZOLE [Concomitant]
     Active Substance: POSACONAZOLE
     Dosage: 300 MG, 2X/DAY WITH MEALS
     Route: 048
  15. POSACONAZOLE [Concomitant]
     Active Substance: POSACONAZOLE
     Dosage: 300 MG, 1X/DAY WITH BREAKFAST
     Route: 048
     Dates: start: 20250612
  16. PROGESTERONE [Concomitant]
     Active Substance: PROGESTERONE
     Dosage: 100 MG, 1X/DAY
     Route: 048
  17. SODIUM FLUORIDE\SODIUM MONOFLUOROPHOSPHATE [Concomitant]
     Active Substance: SODIUM FLUORIDE\SODIUM MONOFLUOROPHOSPHATE
     Dosage: 10 ML, 3X/DAY SWISH AND SPIT AFTER MEALS AND AT BEDTIME
  18. TACROLIMUS [Concomitant]
     Active Substance: TACROLIMUS
     Dosage: 1.6 MG, 1X/DAY
     Route: 042
  19. URSODIOL [Concomitant]
     Active Substance: URSODIOL
     Dosage: 300 MG, 2X/DAY
     Route: 048
  20. VALACYCLOVIR HYDROCHLORIDE [Concomitant]
     Active Substance: VALACYCLOVIR HYDROCHLORIDE
     Dosage: 500 MG, 2X/DAY
     Route: 048
  21. CHOLECALCIFEROL [Concomitant]
     Active Substance: CHOLECALCIFEROL
     Dosage: 25 ?G, 1X/DAY
     Route: 048

REACTIONS (5)
  - Myalgia [Recovering/Resolving]
  - Chest pain [Unknown]
  - Bone pain [Unknown]
  - Mediastinal cyst [Not Recovered/Not Resolved]
  - Musculoskeletal pain [Unknown]

NARRATIVE: CASE EVENT DATE: 20250601
